FAERS Safety Report 9166475 (Version 3)
Quarter: 2013Q4

REPORT INFORMATION
  Report Type: Spontaneous
  Country: US (occurrence: US)
  Receive Date: 20130315
  Receipt Date: 20131119
  Transmission Date: 20140711
  Serious: Yes (Life-Threatening, Hospitalization, Disabling)
  Sender: FDA-Public Use
  Company Number: US-INCYTE CORPORATION-2013IN000470

PATIENT
  Age: 68 Year
  Sex: Male
  Weight: 90.25 kg

DRUGS (25)
  1. JAKAFI [Suspect]
     Indication: MYELOFIBROSIS
     Dosage: 10 MG, BID
     Route: 048
     Dates: start: 20120822, end: 201301
  2. JAKAFI [Suspect]
     Dosage: 10 MG, BID
     Route: 048
     Dates: start: 20131022
  3. ALLOPURINOL [Concomitant]
     Dosage: 1 DF, QD
     Route: 048
  4. ALPRAZOLAM [Concomitant]
  5. CIPRO [Concomitant]
  6. CLONAZEPAM [Concomitant]
  7. ENALAPRIL MALEATE [Concomitant]
     Dosage: 2 DF, QD
     Route: 048
  8. FLOMAX [Concomitant]
     Dosage: 1 DF, QD
     Route: 048
  9. HYDROCODONE [Concomitant]
  10. VISTARIL [Concomitant]
     Dosage: 5 MG, QD PRN QHS
     Route: 048
  11. LACTOBACILLUS NOS [Concomitant]
  12. PRILOSEC OTC (DR/EC) [Concomitant]
     Dosage: 20 MG, BID
     Route: 048
  13. QUALAQUIN [Concomitant]
     Dosage: 1 DF, QHS
     Route: 048
  14. SENSIPAR [Concomitant]
     Dosage: 1 DF, QD (WITH FOOD)
     Route: 048
  15. SODIUM BICARBONATE [Concomitant]
     Dosage: 650 MG, QD
     Route: 048
  16. VALIUM [Concomitant]
     Dosage: 5 MG, QHS, PRN
     Route: 048
  17. THEOLORIC [Concomitant]
  18. HYDROXYZINE [Concomitant]
     Dosage: 10 MG, 1-5 TABLETS, PER DAY, PRN
  19. INDOMETHACIN [Concomitant]
     Dosage: 75 MG, QD (WITH FOOD)
     Route: 048
  20. OXYCODONE WITH APAP [Concomitant]
     Dosage: 1 DF, Q6H, PRN
     Route: 048
  21. CITALOPRAM [Concomitant]
     Dosage: 1 DF, QD
     Route: 048
  22. BACTRIUM DS [Concomitant]
     Dosage: 1 DF, QD
     Route: 048
  23. Z-PAK [Concomitant]
     Dosage: 1 PKT AS DIRECTED ON PACKAGING
     Route: 048
  24. CHOLESTYRAMINE [Concomitant]
     Dosage: 5 GM/5 GM, 1 SCOOP IN JUICE, BID
     Route: 048
  25. HYDROXYUREA [Concomitant]
     Dosage: 1 DF, QOD
     Route: 048

REACTIONS (9)
  - Mechanical ventilation [None]
  - Acute respiratory distress syndrome [Recovering/Resolving]
  - Acute respiratory failure [None]
  - Pneumonia [Recovering/Resolving]
  - Influenza [Recovering/Resolving]
  - Vitamin D deficiency [Recovering/Resolving]
  - Depression [Recovering/Resolving]
  - Thrombocytopenia [Recovered/Resolved]
  - Anaemia [Recovering/Resolving]
